FAERS Safety Report 8322770-2 (Version None)
Quarter: 2012Q2

REPORT INFORMATION
  Report Type: 
  Country: None (occurrence: None)
  Receive Date: 20120430
  Receipt Date: 20091117
  Transmission Date: 20120825
  Serious: Yes (Hospitalization)
  Sender: FDA-Public Use
  Company Number: US-TEVA-2009027179

PATIENT
  Sex: Female
  Weight: 52.21 kg

DRUGS (7)
  1. AMBIEN [Concomitant]
     Dates: start: 20090601, end: 20091114
  2. XYREM [Concomitant]
     Indication: NARCOLEPSY
     Dates: start: 20080201, end: 20090601
  3. FLEXERIL [Concomitant]
     Indication: NECK PAIN
     Dates: start: 20081101
  4. PROVIGIL [Suspect]
     Indication: NARCOLEPSY
     Dosage: 400 MILLIGRAM;
     Route: 048
     Dates: start: 20070101, end: 20091114
  5. ALBUTEROL [Concomitant]
     Indication: ASTHMA
     Dates: start: 20040101
  6. NASONEX [Concomitant]
     Dates: start: 20050101, end: 20091001
  7. ADVAIR DISKUS 100/50 [Concomitant]
     Indication: ASTHMA
     Dates: start: 20030101

REACTIONS (4)
  - MATERNAL EXPOSURE DURING PREGNANCY [None]
  - HEART RATE INCREASED [None]
  - ASTHMA [None]
  - INFLUENZA LIKE ILLNESS [None]
